FAERS Safety Report 6263322-8 (Version None)
Quarter: 2009Q3

REPORT INFORMATION
  Report Type: 
  Country: None (occurrence: None)
  Receive Date: 20090710
  Receipt Date: 20090609
  Transmission Date: 20100115
  Serious: No
  Sender: FDA-Public Use
  Company Number: A0789731A

PATIENT
  Age: 78 Year
  Sex: Female

DRUGS (8)
  1. REQUIP XL [Suspect]
     Indication: PARKINSON'S DISEASE
     Dosage: 2MG PER DAY
     Route: 048
     Dates: start: 20090522
  2. TOPROL-XL [Concomitant]
  3. ACTONEL [Concomitant]
  4. DIGOXIN [Concomitant]
  5. ALDACTONE [Concomitant]
  6. LASIX [Concomitant]
  7. COUMADIN [Concomitant]
  8. VERAPAMIL [Concomitant]

REACTIONS (1)
  - RASH MACULAR [None]
